FAERS Safety Report 18431916 (Version 2)
Quarter: 2020Q4

REPORT INFORMATION
  Report Type: Spontaneous
  Country: BR (occurrence: BR)
  Receive Date: 20201027
  Receipt Date: 20201028
  Transmission Date: 20210114
  Serious: Yes (Other)
  Sender: FDA-Public Use
  Company Number: BR-BAXTER-2020BAX021351

PATIENT
  Age: 72 Year
  Sex: Female
  Weight: 81.2 kg

DRUGS (22)
  1. SODIUM CHLORIDE. [Suspect]
     Active Substance: SODIUM CHLORIDE
     Dosage: EVERY 21 DAYS, GENUXAL+ 0.9 % SODIUM CHLORIDE, CYCLE 2
     Route: 042
     Dates: start: 20200922, end: 20200922
  2. DEXAMETHASONE. [Concomitant]
     Active Substance: DEXAMETHASONE
     Indication: CHEMOTHERAPY SIDE EFFECT PROPHYLAXIS
     Route: 065
  3. SODIUM CHLORIDE. [Suspect]
     Active Substance: SODIUM CHLORIDE
     Dosage: EVERY 21 DAYS, FAULDVINCRI + 0.9 % SODIUM CHLORIDE 50 ML WITH INFUSION TIME OF 30 MINUTES?CYCLE 1
     Route: 042
     Dates: start: 20200828, end: 20200828
  4. FAULDVINCRI [Suspect]
     Active Substance: VINCRISTINE SULFATE
     Dosage: EVERY 21 DAYS, FAULDVINCRI + 0.9 % SODIUM CHLORIDE, CYCLE 2
     Route: 042
     Dates: start: 20200922, end: 20200922
  5. PREDNISONE. [Suspect]
     Active Substance: PREDNISONE
     Indication: NON-HODGKIN^S LYMPHOMA
     Dosage: EVERY 21 DAYS, DAY 1 TO DAY 5?CYCLE 1
     Route: 048
     Dates: start: 20200828, end: 20200901
  6. SIMVASTATIN. [Concomitant]
     Active Substance: SIMVASTATIN
     Indication: PRODUCT USED FOR UNKNOWN INDICATION
     Route: 048
  7. ATENOLOL. [Concomitant]
     Active Substance: ATENOLOL
     Indication: PRODUCT USED FOR UNKNOWN INDICATION
     Route: 048
  8. DEXTROSE. [Suspect]
     Active Substance: DEXTROSE
     Dosage: EVERY 21 DAYS, FAULDOXO + 5 % DEXTROSE, CYCLE 2
     Route: 042
     Dates: start: 20200922, end: 20200922
  9. FAULDVINCRI [Suspect]
     Active Substance: VINCRISTINE SULFATE
     Indication: NON-HODGKIN^S LYMPHOMA
     Dosage: EVERY 21 DAYS, FAULDVINCRI + 0.9 % SODIUM CHLORIDE 50 ML WITH INFUSION TIME OF 30 MINUTES?CYCLE 1
     Route: 042
     Dates: start: 20200828, end: 20200828
  10. SODIUM CHLORIDE. [Suspect]
     Active Substance: SODIUM CHLORIDE
     Dosage: EVERY 21 DAYS, FAULDVINCRI + 0.9 % SODIUM CHLORIDE, CYCLE 2
     Route: 042
     Dates: start: 20200922, end: 20200922
  11. DEXTROSE. [Suspect]
     Active Substance: DEXTROSE
     Indication: MEDICATION DILUTION
     Dosage: EVERY 21 DAYS, FAULDOXO + 5 % DEXTROSE 50 ML WITH INFUSION TIME OF 15 MINUTES?CYCLE 1
     Route: 042
     Dates: start: 20200828, end: 20200828
  12. PALONOSETRON. [Concomitant]
     Active Substance: PALONOSETRON HYDROCHLORIDE
     Indication: CHEMOTHERAPY SIDE EFFECT PROPHYLAXIS
     Route: 065
  13. GENUXAL [Suspect]
     Active Substance: CYCLOPHOSPHAMIDE
     Indication: NON-HODGKIN^S LYMPHOMA
     Dosage: EVERY 21 DAYS, GENUXAL+ 0.9 % SODIUM CHLORIDE 250 ML WITH INFUSION TIME OF 30 MINUTES?CYCLE 1
     Route: 042
     Dates: start: 20200828, end: 20200828
  14. SODIUM CHLORIDE. [Suspect]
     Active Substance: SODIUM CHLORIDE
     Indication: MEDICATION DILUTION
     Dosage: EVERY 21 DAYS, GENUXAL+ 0.9 % SODIUM CHLORIDE 250 ML WITH INFUSION TIME OF 30 MINUTES?CYCLE 1
     Route: 042
     Dates: start: 20200828, end: 20200828
  15. FAULDOXO [Suspect]
     Active Substance: DOXORUBICIN HYDROCHLORIDE
     Indication: NON-HODGKIN^S LYMPHOMA
     Dosage: EVERY 21 DAYS, FAULDOXO + 5 % DEXTROSE 50 ML  WITH INFUSION TIME OF 15 MINUTES?CYCLE 1
     Route: 042
     Dates: start: 20200828, end: 20200828
  16. INDAPAMIDE. [Concomitant]
     Active Substance: INDAPAMIDE
     Indication: PRODUCT USED FOR UNKNOWN INDICATION
     Route: 048
  17. GENUXAL [Suspect]
     Active Substance: CYCLOPHOSPHAMIDE
     Dosage: EVERY 21 DAYS, GENUXAL+ 0.9 % SODIUM CHLORIDE, CYCLE 2
     Route: 042
     Dates: start: 20200922, end: 20200922
  18. FAULDOXO [Suspect]
     Active Substance: DOXORUBICIN HYDROCHLORIDE
     Dosage: EVERY 21 DAYS, FAULDOXO + 5 % DEXTROSE, CYCLE 2
     Route: 042
     Dates: start: 20200922, end: 20200922
  19. PREDNISONE. [Suspect]
     Active Substance: PREDNISONE
     Dosage: EVERY 21 DAYS, CYCLE 2
     Route: 048
     Dates: start: 20200922, end: 20200922
  20. LOSARTAN. [Concomitant]
     Active Substance: LOSARTAN
     Indication: PRODUCT USED FOR UNKNOWN INDICATION
     Route: 048
  21. ACETYLSALICYLIC ACID [Concomitant]
     Active Substance: ASPIRIN
     Indication: PRODUCT USED FOR UNKNOWN INDICATION
     Route: 048
  22. FOSAPREPITANT [Concomitant]
     Active Substance: FOSAPREPITANT
     Indication: PREMEDICATION
     Route: 065

REACTIONS (1)
  - Neutropenia [Recovered/Resolved]

NARRATIVE: CASE EVENT DATE: 20200908
